FAERS Safety Report 7122529-8 (Version None)
Quarter: 2010Q4

REPORT INFORMATION
  Report Type: 
  Country: None (occurrence: None)
  Receive Date: 20101124
  Receipt Date: 20101115
  Transmission Date: 20110411
  Serious: Yes (Other)
  Sender: FDA-Public Use
  Company Number: US-ABBOTT-10P-163-0686076-00

PATIENT
  Age: 72 Year
  Sex: Female
  Weight: 73.548 kg

DRUGS (1)
  1. HUMIRA [Suspect]
     Indication: RHEUMATOID ARTHRITIS
     Dates: start: 20050101, end: 20101015

REACTIONS (3)
  - CYSTITIS [None]
  - DEAFNESS UNILATERAL [None]
  - STOMATITIS [None]
